FAERS Safety Report 10202450 (Version 3)
Quarter: 2014Q2

REPORT INFORMATION
  Report Type: Spontaneous
  Country: DZ (occurrence: DZ)
  Receive Date: 20140528
  Receipt Date: 20140606
  Transmission Date: 20141212
  Serious: Yes (Other)
  Sender: FDA-Public Use
  Company Number: DZ-SA-2014SA065414

PATIENT
  Sex: Male

DRUGS (1)
  1. TAXOTERE [Suspect]
     Indication: LUNG NEOPLASM MALIGNANT
     Dosage: ROUTE: PERFUSION
     Dates: start: 20140505, end: 20140505

REACTIONS (5)
  - Aplasia [Recovered/Resolved]
  - Toxic skin eruption [Recovered/Resolved]
  - Mucosal inflammation [Recovered/Resolved]
  - Thermal burn [Recovered/Resolved]
  - Phlebitis [Recovered/Resolved]
